FAERS Safety Report 5883544-5 (Version None)
Quarter: 2008Q3

REPORT INFORMATION
  Report Type: 
  Country: None (occurrence: None)
  Receive Date: 20080915
  Receipt Date: 20080909
  Transmission Date: 20090109
  Serious: Yes (Hospitalization, Other)
  Sender: FDA-Public Use
  Company Number: PHNU2008DE00656

PATIENT
  Sex: Female

DRUGS (3)
  1. DIOVAN [Suspect]
     Dosage: 0.5 DF, QD
     Route: 048
     Dates: start: 20020101
  2. DIOVAN HCT [Suspect]
     Dosage: 1 DF, QD
     Route: 048
     Dates: start: 20020101, end: 20080201
  3. BISOPROLOL FUMARATE [Concomitant]
     Dates: start: 20040101

REACTIONS (11)
  - ABDOMINAL DISCOMFORT [None]
  - ABDOMINAL PAIN [None]
  - BLOOD AMYLASE INCREASED [None]
  - GIARDIASIS [None]
  - LEUKOPENIA [None]
  - LIPASE INCREASED [None]
  - PANCREATITIS [None]
  - PSEUDOMEMBRANOUS COLITIS [None]
  - SINUSITIS [None]
  - THROMBOCYTOPENIA [None]
  - WEIGHT DECREASED [None]
